FAERS Safety Report 9648906 (Version 2)
Quarter: 2014Q1

REPORT INFORMATION
  Report Type: Spontaneous
  Country: CA (occurrence: CA)
  Receive Date: 20131028
  Receipt Date: 20140116
  Transmission Date: 20141002
  Serious: Yes (Death, Hospitalization, Other)
  Sender: FDA-Public Use
  Company Number: CA-PFIZER INC-2013304623

PATIENT
  Age: 68 Year
  Sex: Male

DRUGS (2)
  1. XALKORI [Suspect]
     Indication: NON-SMALL CELL LUNG CANCER
     Dosage: 250 MG, 2X/DAY
     Dates: start: 20120714
  2. XALKORI [Suspect]
     Dosage: 250 MG, DAILY
     Route: 048
     Dates: start: 20120724, end: 20130819

REACTIONS (1)
  - Pneumonia [Fatal]
